FAERS Safety Report 6025929-2 (Version None)
Quarter: 2009Q1

REPORT INFORMATION
  Report Type: 
  Country: None (occurrence: None)
  Receive Date: 20090102
  Receipt Date: 20081218
  Transmission Date: 20090719
  Serious: Yes (Other)
  Sender: FDA-Public Use
  Company Number: JP-ROCHE-605349

PATIENT
  Sex: Female
  Weight: 55 kg

DRUGS (3)
  1. TAMIFLU [Suspect]
     Indication: INFLUENZA
     Route: 048
     Dates: start: 20081217, end: 20081218
  2. HUSCODE [Concomitant]
     Route: 048
     Dates: start: 20081216, end: 20081218
  3. MUCODYNE [Concomitant]
     Route: 048
     Dates: start: 20081216, end: 20081218

REACTIONS (1)
  - ALTERED STATE OF CONSCIOUSNESS [None]
